FAERS Safety Report 9737334 (Version 2)
Quarter: 2013Q4

REPORT INFORMATION
  Report Type: Spontaneous
  Country: US (occurrence: US)
  Receive Date: 20131206
  Receipt Date: 20131224
  Transmission Date: 20140711
  Serious: No
  Sender: FDA-Public Use
  Company Number: US-BIOGENIDEC-2013BI098284

PATIENT
  Age: 61 Year
  Sex: Female

DRUGS (2)
  1. TECFIDERA [Suspect]
     Indication: RELAPSING-REMITTING MULTIPLE SCLEROSIS
     Route: 048
     Dates: start: 20130420, end: 20130426
  2. TECFIDERA [Suspect]
     Indication: RELAPSING-REMITTING MULTIPLE SCLEROSIS
     Route: 048
     Dates: start: 20130427

REACTIONS (11)
  - Sinusitis [Not Recovered/Not Resolved]
  - Cognitive disorder [Not Recovered/Not Resolved]
  - Amnesia [Not Recovered/Not Resolved]
  - Heat exhaustion [Recovered/Resolved]
  - Headache [Recovered/Resolved]
  - Muscle spasms [Recovered/Resolved]
  - Central nervous system lesion [Unknown]
  - Flushing [Recovered/Resolved]
  - White blood cell count decreased [Recovered/Resolved]
  - Vomiting [Recovered/Resolved]
  - Lymphocyte count decreased [Not Recovered/Not Resolved]
